FAERS Safety Report 7791377-8 (Version None)
Quarter: 2011Q4

REPORT INFORMATION
  Report Type: 
  Country: None (occurrence: None)
  Receive Date: 20111003
  Receipt Date: 20110920
  Transmission Date: 20120403
  Serious: Yes (Hospitalization)
  Sender: FDA-Public Use
  Company Number: CA-JNJFOC-20110310075

PATIENT
  Sex: Female
  Weight: 76 kg

DRUGS (8)
  1. REMICADE [Suspect]
     Indication: CROHN'S DISEASE
     Route: 042
     Dates: start: 20080501
  2. IMURAN [Concomitant]
     Route: 048
     Dates: start: 20060101
  3. VENTOLIN HFA [Concomitant]
     Route: 065
  4. VITAMIN TAB [Concomitant]
     Route: 065
  5. ASPIRIN [Concomitant]
  6. PREDNISONE [Concomitant]
     Indication: PREMEDICATION
     Route: 048
  7. REMICADE [Suspect]
     Route: 042
     Dates: start: 20071001
  8. BENADRYL [Concomitant]
     Indication: PREMEDICATION
     Route: 048

REACTIONS (2)
  - MATERNAL EXPOSURE DURING PREGNANCY [None]
  - HOSPITALISATION [None]
